FAERS Safety Report 10590766 (Version 1)
Quarter: 2014Q4

REPORT INFORMATION
  Report Type: Spontaneous
  Country: BR (occurrence: BR)
  Receive Date: 20141118
  Receipt Date: 20141118
  Transmission Date: 20150529
  Serious: Yes (Other)
  Sender: FDA-Public Use
  Company Number: BR-BRISTOL-MYERS SQUIBB COMPANY-21577218

PATIENT
  Age: 75 Year
  Sex: Female

DRUGS (2)
  1. ELIQUIS [Suspect]
     Active Substance: APIXABAN
     Dosage: TABS
     Route: 048
  2. RIVOTRIL [Concomitant]
     Active Substance: CLONAZEPAM

REACTIONS (4)
  - Arrhythmia [Unknown]
  - Pain in extremity [Unknown]
  - Hypertensive crisis [Unknown]
  - Peripheral coldness [Unknown]

NARRATIVE: CASE EVENT DATE: 2014
